FAERS Safety Report 20035599 (Version 3)
Quarter: 2021Q4

REPORT INFORMATION
  Report Type: Report from Study
  Country: US (occurrence: US)
  Receive Date: 20211104
  Receipt Date: 20211122
  Transmission Date: 20220303
  Serious: Yes (Hospitalization)
  Sender: FDA-Public Use
  Company Number: US-SEATTLE GENETICS-2021SGN05626

PATIENT
  Age: 80 Year
  Sex: Male
  Weight: 87 kg

DRUGS (22)
  1. TUCATINIB [Suspect]
     Active Substance: TUCATINIB
     Indication: Oesophageal adenocarcinoma
     Dosage: 300 MG, BID
     Route: 048
     Dates: start: 20211011, end: 20211029
  2. TRASTUZUMAB [Suspect]
     Active Substance: TRASTUZUMAB
     Indication: Oesophageal adenocarcinoma
     Dosage: 6 MG/KG, SINGLE
     Route: 042
     Dates: start: 20211004, end: 20211004
  3. TRASTUZUMAB [Suspect]
     Active Substance: TRASTUZUMAB
     Dosage: 4 MG LVON DAY 1 OF EVERY 2-WEEKCYCLE
     Route: 042
     Dates: end: 20211018
  4. OXALIPLATIN [Suspect]
     Active Substance: OXALIPLATIN
     Indication: Oesophageal adenocarcinoma
     Dosage: 85 MG/M2, Q2WEEKS
     Route: 042
     Dates: start: 20211004, end: 20211018
  5. LEUCOVORIN [Suspect]
     Active Substance: LEUCOVORIN
     Indication: Oesophageal adenocarcinoma
     Dosage: 200 MG/M2, Q2WEEKS
     Route: 042
     Dates: start: 20211004, end: 20211018
  6. FLUOROURACIL [Suspect]
     Active Substance: FLUOROURACIL
     Indication: Oesophageal adenocarcinoma
     Dosage: 2400 MG/M2, Q2WEEKS
     Route: 042
     Dates: start: 20211004, end: 20211021
  7. PREDNISONE [Concomitant]
     Active Substance: PREDNISONE
     Indication: Vision blurred
     Dosage: 60 MG, QD
     Route: 048
     Dates: start: 20211008
  8. EMLA [Concomitant]
     Active Substance: LIDOCAINE\PRILOCAINE
     Dosage: UNK
     Route: 061
     Dates: start: 20210913
  9. ZOFRAN [Concomitant]
     Active Substance: ONDANSETRON HYDROCHLORIDE
     Indication: Nausea
     Dosage: UNK,
     Route: 061
     Dates: start: 20210919
  10. COMPAZINE [Concomitant]
     Active Substance: PROCHLORPERAZINE MALEATE
     Indication: Nausea
     Dosage: 10 MG, Q6HR
     Route: 048
     Dates: start: 20210919
  11. COMPAZINE [Concomitant]
     Active Substance: PROCHLORPERAZINE MALEATE
     Indication: Vomiting
  12. ASPIRIN [Concomitant]
     Active Substance: ASPIRIN
     Dosage: 81 MG, QD
     Route: 048
     Dates: start: 20211005
  13. LIPITOR [Concomitant]
     Active Substance: ATORVASTATIN CALCIUM
     Dosage: 20 MG, QD
     Route: 048
     Dates: start: 20200216
  14. COREG [Concomitant]
     Active Substance: CARVEDILOL
     Indication: Hypertension
     Dosage: 3.125 MG
     Route: 048
     Dates: start: 20200920
  15. PRILOSEC [Concomitant]
     Active Substance: OMEPRAZOLE MAGNESIUM
     Indication: Gastrooesophageal reflux disease
     Dosage: 40 MG, BID
     Route: 048
     Dates: start: 20210824
  16. HYTRIN [Concomitant]
     Active Substance: TERAZOSIN HYDROCHLORIDE
     Dosage: SINCE 20 YEARS, 10 MG, NIGHTLY
     Route: 048
  17. XALATAN [Concomitant]
     Active Substance: LATANOPROST
     Indication: Glaucoma
     Dosage: 2 YEARS, PRN
     Route: 047
  18. AMBIEN [Concomitant]
     Active Substance: ZOLPIDEM TARTRATE
     Indication: Insomnia
     Dosage: 5 MG, QPM, SINCE 10 YEARS
     Route: 048
  19. CETIRIZINE HYDROCHLORIDE [Concomitant]
     Active Substance: CETIRIZINE HYDROCHLORIDE
     Indication: Hypersensitivity
     Dosage: 25 MG, PRN
     Route: 048
     Dates: start: 20210921
  20. LOPERAMIDE [Concomitant]
     Active Substance: LOPERAMIDE
     Indication: Diarrhoea
     Dosage: 2 MG
     Dates: start: 20211023
  21. ENOXAPARIN [Concomitant]
     Active Substance: ENOXAPARIN
     Indication: Pulmonary embolism
     Dosage: 100 MG, BID
     Route: 048
     Dates: start: 20210928
  22. BETIMOL [TIMOLOL] [Concomitant]
     Indication: Glaucoma
     Dosage: 2 YEARS, PRN

REACTIONS (2)
  - Diarrhoea [Recovered/Resolved]
  - Aspiration [Recovered/Resolved]

NARRATIVE: CASE EVENT DATE: 20211030
